FAERS Safety Report 12661391 (Version 2)
Quarter: 2016Q3

REPORT INFORMATION
  Report Type: Spontaneous
  Country: US (occurrence: US)
  Receive Date: 20160817
  Receipt Date: 20160901
  Transmission Date: 20161109
  Serious: No
  Sender: FDA-Public Use
  Company Number: US-RELYPSA-RLY2016000665

PATIENT
  Age: 82 Year
  Sex: Male

DRUGS (15)
  1. IRBESARTAN. [Concomitant]
     Active Substance: IRBESARTAN
  2. VELTASSA [Suspect]
     Active Substance: PATIROMER
     Indication: HYPERKALAEMIA
     Dosage: 8.4 G, QD
     Route: 048
     Dates: start: 20160426
  3. FISH OIL CONCENTRATE [Concomitant]
  4. SPIRONOLACTONE. [Concomitant]
     Active Substance: SPIRONOLACTONE
  5. METOLAZONE. [Concomitant]
     Active Substance: METOLAZONE
  6. METOPROLOL TARTRATE. [Concomitant]
     Active Substance: METOPROLOL TARTRATE
  7. ATORVASTATIN CALCIUM. [Concomitant]
     Active Substance: ATORVASTATIN CALCIUM
  8. AMLODIPINE BESYLATE AND BENAZEPRIL HYDROCHLOR [Concomitant]
  9. ASPIRIN 81 [Concomitant]
     Active Substance: ASPIRIN
  10. DULCOLAX (BISACODYL) [Concomitant]
     Active Substance: BISACODYL
  11. CETIRIZINE HCL [Concomitant]
     Active Substance: CETIRIZINE HYDROCHLORIDE
  12. SAW PALMETTO                       /00833501/ [Concomitant]
     Active Substance: SAW PALMETTO
  13. VITAMIN D [Concomitant]
     Active Substance: CHOLECALCIFEROL
  14. LEVOTHYROXINE SODIUM. [Concomitant]
     Active Substance: LEVOTHYROXINE SODIUM
  15. HUMALOG MIX [Concomitant]
     Active Substance: INSULIN LISPRO

REACTIONS (2)
  - Adverse event [Unknown]
  - Constipation [Not Recovered/Not Resolved]

NARRATIVE: CASE EVENT DATE: 201604
